FAERS Safety Report 6760793-5 (Version None)
Quarter: 2010Q2

REPORT INFORMATION
  Report Type: 
  Country: None (occurrence: None)
  Receive Date: 20100608
  Receipt Date: 20100604
  Transmission Date: 20101027
  Serious: Yes (Hospitalization, Other)
  Sender: FDA-Public Use
  Company Number: US-MERCK-0907USA01970

PATIENT
  Age: 60 Year
  Sex: Female

DRUGS (5)
  1. FOSAMAX [Suspect]
     Indication: OSTEOPOROSIS
     Route: 048
     Dates: start: 20031001, end: 20070101
  2. FOSAMAX [Suspect]
     Route: 048
     Dates: start: 19980101, end: 20080901
  3. FOSAMAX [Suspect]
     Route: 048
     Dates: start: 20040527
  4. FOSAMAX PLUS D [Concomitant]
     Indication: OSTEOPOROSIS
     Route: 048
     Dates: start: 20070201, end: 20080801
  5. ZOMETA [Concomitant]
     Indication: BREAST CANCER
     Route: 042
     Dates: start: 20080101, end: 20080501

REACTIONS (33)
  - ABDOMINAL DISCOMFORT [None]
  - ADVERSE DRUG REACTION [None]
  - ANAEMIA [None]
  - BONE DENSITY DECREASED [None]
  - BREAST CANCER RECURRENT [None]
  - BREAST CANCER STAGE II [None]
  - BREAST DISORDER [None]
  - DENTAL CARIES [None]
  - DEVICE RELATED INFECTION [None]
  - DRUG INEFFECTIVE [None]
  - DYSPHONIA [None]
  - ERYTHEMA [None]
  - FATIGUE [None]
  - HOT FLUSH [None]
  - HYDRONEPHROSIS [None]
  - LOCALISED INFECTION [None]
  - METASTASIS [None]
  - NEOPLASM MALIGNANT [None]
  - OSTEOMYELITIS [None]
  - OSTEONECROSIS OF JAW [None]
  - OVARIAN DISORDER [None]
  - PARAESTHESIA [None]
  - PERIODONTITIS [None]
  - PIGMENTATION DISORDER [None]
  - RADIATION SKIN INJURY [None]
  - REFLUX LARYNGITIS [None]
  - RENAL DISORDER [None]
  - SKIN EXFOLIATION [None]
  - TOOTH DISORDER [None]
  - TOOTH FRACTURE [None]
  - TOOTH INFECTION [None]
  - TOOTHACHE [None]
  - VOCAL CORD DISORDER [None]
